FAERS Safety Report 16814242 (Version 1)
Quarter: 2019Q3

REPORT INFORMATION
  Report Type: Spontaneous
  Country: US (occurrence: US)
  Receive Date: 20190917
  Receipt Date: 20190917
  Transmission Date: 20191005
  Serious: No
  Sender: FDA-Public Use
  Company Number: US-ALLERGAN-1919201US

PATIENT
  Sex: Female

DRUGS (1)
  1. SUCRALFATE UNK [Suspect]
     Active Substance: SUCRALFATE
     Indication: IMPAIRED GASTRIC EMPTYING
     Dosage: UNK
     Route: 065
     Dates: end: 201903

REACTIONS (3)
  - Off label use [Unknown]
  - Vomiting [Recovered/Resolved]
  - Treatment failure [Recovered/Resolved]
